FAERS Safety Report 4697384-6 (Version None)
Quarter: 2005Q2

REPORT INFORMATION
  Report Type: 
  Country: None (occurrence: None)
  Receive Date: 20050621
  Receipt Date: 20050607
  Transmission Date: 20051028
  Serious: Yes (Other)
  Sender: FDA-Public Use
  Company Number: USA050699915

PATIENT
  Age: 34 Year
  Sex: Female
  Weight: 61 kg

DRUGS (5)
  1. STRATTERA [Suspect]
     Indication: ATTENTION DEFICIT/HYPERACTIVITY DISORDER
     Dosage: 60 MG DAY
     Dates: start: 20040701
  2. MAXAIR [Concomitant]
  3. PROTONIX [Concomitant]
  4. DEPO-PROVERA SUSPENSION/INJ [Concomitant]
  5. CONCERTA [Concomitant]

REACTIONS (3)
  - MALIGNANT HYPERTENSION [None]
  - METANEPHRINE URINE INCREASED [None]
  - NORMETANEPHRINE URINE INCREASED [None]
